FAERS Safety Report 8605685-1 (Version None)
Quarter: 2012Q3

REPORT INFORMATION
  Report Type: 
  Country: None (occurrence: None)
  Receive Date: 20120820
  Receipt Date: 20120815
  Transmission Date: 20120928
  Serious: Yes (Death, Life-Threatening)
  Sender: FDA-Public Use
  Company Number: GB-ROCHE-1073748

PATIENT
  Age: 66 Year
  Sex: Male
  Weight: 99 kg

DRUGS (8)
  1. ASCORBIC ACID [Concomitant]
  2. COD LIVER OIL [Concomitant]
  3. TOCILIZUMAB [Suspect]
     Indication: RHEUMATOID ARTHRITIS
     Route: 042
  4. ASPIRIN [Concomitant]
  5. PREDNISOLONE [Concomitant]
     Indication: RHEUMATOID ARTHRITIS
     Route: 048
  6. FOLIC ACID [Concomitant]
  7. FELODIPINE [Concomitant]
  8. GARLIC [Concomitant]

REACTIONS (3)
  - MULTI-ORGAN FAILURE [None]
  - ACUTE RESPIRATORY DISTRESS SYNDROME [None]
  - SEPSIS [None]
